FAERS Safety Report 8602499-3 (Version None)
Quarter: 2012Q3

REPORT INFORMATION
  Report Type: 
  Country: None (occurrence: None)
  Receive Date: 20120817
  Receipt Date: 19940502
  Transmission Date: 20120928
  Serious: Yes (Hospitalization, Other)
  Sender: FDA-Public Use
  Company Number: US-ROCHE-1101345

PATIENT
  Sex: Male

DRUGS (2)
  1. ACTIVASE [Suspect]
     Route: 040
  2. ACTIVASE [Suspect]
     Indication: ACUTE MYOCARDIAL INFARCTION
     Dosage: OVER 30 MINS
     Route: 040
     Dates: start: 19940309

REACTIONS (2)
  - BLOOD CREATINE PHOSPHOKINASE INCREASED [None]
  - VENTRICULAR ARRHYTHMIA [None]
